FAERS Safety Report 22242057 (Version 1)
Quarter: 2023Q2

REPORT INFORMATION
  Report Type: Report from Study
  Country: US (occurrence: US)
  Receive Date: 20230421
  Receipt Date: 20230421
  Transmission Date: 20230721
  Serious: No
  Sender: FDA-Public Use
  Company Number: US-002147023-NVSC2023US089802

PATIENT
  Sex: Male
  Weight: 74.84 kg

DRUGS (5)
  1. AMITRIPTYLINE [Suspect]
     Active Substance: AMITRIPTYLINE
     Indication: Treatment failure
     Dosage: UNK
     Route: 048
  2. BETAMETHASONE [Suspect]
     Active Substance: BETAMETHASONE
     Indication: Psoriasis
     Dosage: 5 %, OTHER (X2 WEEKS ON, 2 WEEKS OFF CYCLE FOR FEET)
     Route: 061
  3. CEPHALEXIN [Suspect]
     Active Substance: CEPHALEXIN
     Indication: Psoriasis
     Dosage: 500 MG
     Route: 048
  4. LISINOPRIL [Suspect]
     Active Substance: LISINOPRIL
     Indication: Psoriasis
     Dosage: UNK
     Route: 048
  5. CALCIPOTRIENE [Suspect]
     Active Substance: CALCIPOTRIENE
     Indication: Psoriasis
     Dosage: 5 %
     Route: 061

REACTIONS (1)
  - Treatment failure [Unknown]
